FAERS Safety Report 6785709-7 (Version None)
Quarter: 2010Q2

REPORT INFORMATION
  Report Type: 
  Country: None (occurrence: None)
  Receive Date: 20100623
  Receipt Date: 20100609
  Transmission Date: 20101027
  Serious: Yes (Other)
  Sender: FDA-Public Use
  Company Number: PHHY2010CA32362

PATIENT
  Sex: Male

DRUGS (2)
  1. CLOZARIL [Suspect]
     Indication: SCHIZOPHRENIA
     Dosage: 100 MG QAM, 300 MG QHS
     Route: 048
     Dates: start: 20090921
  2. RISPERIDONE [Concomitant]
     Dosage: 0.5 MG, QHS
     Route: 048
     Dates: start: 20090701, end: 20100301

REACTIONS (2)
  - BLOOD PROLACTIN INCREASED [None]
  - NEUTROPHIL COUNT DECREASED [None]
